FAERS Safety Report 10387570 (Version 1)
Quarter: 2014Q3

REPORT INFORMATION
  Report Type: Spontaneous
  Country: US (occurrence: US)
  Receive Date: 20140815
  Receipt Date: 20140815
  Transmission Date: 20150326
  Serious: Yes (Hospitalization, Other)
  Sender: FDA-Public Use
  Company Number: US-PFIZER INC-2014227215

PATIENT
  Age: 74 Year
  Sex: Female

DRUGS (1)
  1. DETROL [Suspect]
     Active Substance: TOLTERODINE TARTRATE
     Dosage: UNK

REACTIONS (5)
  - Bladder disorder [Unknown]
  - Cystitis noninfective [Unknown]
  - Muscle spasms [Unknown]
  - Malaise [Unknown]
  - Urinary retention [Unknown]

NARRATIVE: CASE EVENT DATE: 2014
